FAERS Safety Report 4353365-3 (Version None)
Quarter: 2004Q2

REPORT INFORMATION
  Report Type: 
  Country: None (occurrence: None)
  Receive Date: 20040427
  Receipt Date: 20040421
  Transmission Date: 20050107
  Serious: No
  Sender: FDA-Public Use
  Company Number: CART-10338

PATIENT
  Age: 33 Year
  Sex: Female

DRUGS (1)
  1. CARTICEL [Suspect]
     Indication: ARTHROPATHY
     Dosage: 1 NA ONCE IS
     Dates: start: 19980427, end: 19980427

REACTIONS (2)
  - GRAFT OVERGROWTH [None]
  - MEDICAL DEVICE PAIN [None]
